FAERS Safety Report 5098039-9 (Version None)
Quarter: 2006Q3

REPORT INFORMATION
  Report Type: 
  Country: None (occurrence: None)
  Receive Date: 20060906
  Receipt Date: 20060830
  Transmission Date: 20061208
  Serious: Yes (Death)
  Sender: FDA-Public Use
  Company Number: JP-AVENTIS-200612707JP

PATIENT
  Age: 65 Year
  Sex: Male

DRUGS (1)
  1. TAXOTERE [Suspect]
     Indication: OESOPHAGEAL CARCINOMA

REACTIONS (2)
  - DISSEMINATED INTRAVASCULAR COAGULATION [None]
  - PULMONARY EMBOLISM [None]
